FAERS Safety Report 5920256-3 (Version None)
Quarter: 2008Q4

REPORT INFORMATION
  Report Type: 
  Country: None (occurrence: None)
  Receive Date: 20081014
  Receipt Date: 20080930
  Transmission Date: 20090506
  Serious: Yes (Other)
  Sender: FDA-Public Use
  Company Number: 2008AL011001

PATIENT
  Age: 50 Year
  Sex: Male

DRUGS (10)
  1. FLUOXETINE [Suspect]
     Dosage: 40 MG;
  2. OXYCODONE HCL [Suspect]
     Indication: PAIN
     Dosage: 80 MG; BID;
     Dates: start: 20061201
  3. OMEPRAZOLE [Concomitant]
  4. PREDNISOLONE [Concomitant]
  5. ETORICOXIB [Concomitant]
  6. SENNA [Concomitant]
  7. ISPAGHULA [Concomitant]
  8. CALCICHEW [Concomitant]
  9. IBANDRONIC ACID [Concomitant]
  10. DIHYDROCODEINE BITARTRATE INJ [Concomitant]

REACTIONS (5)
  - CONSTIPATION [None]
  - DRUG DEPENDENCE [None]
  - DRUG INEFFECTIVE [None]
  - DRUG INTERACTION [None]
  - HYPERHIDROSIS [None]
